FAERS Safety Report 5780212-5 (Version None)
Quarter: 2008Q2

REPORT INFORMATION
  Report Type: 
  Country: None (occurrence: None)
  Receive Date: 20080620
  Receipt Date: 20080421
  Transmission Date: 20081010
  Serious: Yes (Hospitalization)
  Sender: FDA-Public Use
  Company Number: US-BRISTOL-MYERS SQUIBB COMPANY-14167241

PATIENT
  Age: 68 Year
  Sex: Male
  Weight: 95 kg

DRUGS (6)
  1. CETUXIMAB [Suspect]
     Indication: NON-SMALL CELL LUNG CANCER
     Dosage: TAKEN ONCE
     Route: 042
     Dates: start: 20080409, end: 20080409
  2. TAXOTERE [Suspect]
     Indication: NON-SMALL CELL LUNG CANCER
     Route: 042
     Dates: start: 20080409, end: 20080409
  3. ADVAIR DISKUS 100/50 [Concomitant]
     Route: 055
  4. ALBUTEROL SULFATE AUTOHALER [Concomitant]
     Route: 055
  5. DIOVAN [Concomitant]
  6. VICODIN [Concomitant]
     Dosage: 1 DOSAGE FORM = 5/500MG
     Route: 048

REACTIONS (1)
  - CHEST PAIN [None]
